FAERS Safety Report 5803069-2 (Version None)
Quarter: 2008Q3

REPORT INFORMATION
  Report Type: 
  Country: None (occurrence: None)
  Receive Date: 20080703
  Receipt Date: 20080623
  Transmission Date: 20090109
  Serious: Yes (Life-Threatening)
  Sender: FDA-Public Use
  Company Number: 001451

PATIENT
  Age: 7 Month
  Sex: Female

DRUGS (10)
  1. BUSULFEX [Suspect]
     Indication: STEM CELL TRANSPLANT
     Dosage: SEE IMAGE
     Route: 042
     Dates: start: 20080227, end: 20080228
  2. BUSULFEX [Suspect]
     Indication: STEM CELL TRANSPLANT
     Dosage: SEE IMAGE
     Route: 042
     Dates: start: 20080229, end: 20080229
  3. BUSULFEX [Suspect]
     Indication: STEM CELL TRANSPLANT
     Dosage: SEE IMAGE
     Route: 042
     Dates: start: 20080301, end: 20080301
  4. ETOPOSIDE [Concomitant]
  5. CYCLOPHOSPHAMIDE [Concomitant]
  6. CLONAZEPAM [Concomitant]
  7. NEUPOGEN [Concomitant]
  8. METHOTREXATE [Concomitant]
  9. TACROLIMUS [Concomitant]
  10. PREDNISONE TAB [Concomitant]

REACTIONS (10)
  - ACUTE LYMPHOCYTIC LEUKAEMIA RECURRENT [None]
  - ANOREXIA [None]
  - CONVULSION [None]
  - DIARRHOEA [None]
  - GRAFT VERSUS HOST DISEASE [None]
  - NAUSEA [None]
  - RESPIRATORY DISORDER [None]
  - STOMATITIS [None]
  - VENOOCCLUSIVE LIVER DISEASE [None]
  - VOMITING [None]
